FAERS Safety Report 10677334 (Version 1)
Quarter: 2014Q4

REPORT INFORMATION
  Report Type: Spontaneous
  Country: US (occurrence: US)
  Receive Date: 20141226
  Receipt Date: 20141226
  Transmission Date: 20150529
  Serious: No
  Sender: FDA-Public Use
  Company Number: US-BAUSCH-SYM-2013-14148

PATIENT
  Age: 66 Year
  Sex: Male

DRUGS (4)
  1. XENAZINE [Suspect]
     Active Substance: TETRABENAZINE
     Dosage: 1 TABLET, 3 TIMES ONE DAY
     Route: 048
     Dates: start: 20131203, end: 20131203
  2. XENAZINE [Suspect]
     Active Substance: TETRABENAZINE
     Dosage: 1 TABLET, TWICE DAILY
     Route: 048
     Dates: start: 20131204
  3. CLONAZEPAM. [Concomitant]
     Active Substance: CLONAZEPAM
     Indication: PRODUCT USED FOR UNKNOWN INDICATION
  4. XENAZINE [Suspect]
     Active Substance: TETRABENAZINE
     Indication: CHOREA
     Dosage: 1 TABLET, TWICE A DAY
     Route: 048
     Dates: start: 20131114, end: 20131202

REACTIONS (3)
  - Tremor [Recovering/Resolving]
  - Panic attack [Recovering/Resolving]
  - Dizziness [Recovering/Resolving]

NARRATIVE: CASE EVENT DATE: 20131203
